FAERS Safety Report 5165013-3 (Version None)
Quarter: 2006Q4

REPORT INFORMATION
  Report Type: 
  Country: None (occurrence: None)
  Receive Date: 20061124
  Receipt Date: 20061114
  Transmission Date: 20070319
  Serious: Yes (Hospitalization)
  Sender: FDA-Public Use
  Company Number: 2006130185

PATIENT
  Age: 75 Year
  Sex: Male

DRUGS (4)
  1. HALCION [Suspect]
     Indication: INSOMNIA
     Dosage: 0.5 MG ORAL
     Route: 048
     Dates: start: 20030609, end: 20061001
  2. LASIX [Concomitant]
  3. WARFARIN SODIUM [Concomitant]
  4. ALLOPURINOL [Concomitant]

REACTIONS (5)
  - DIARRHOEA [None]
  - HYPERGASTRINAEMIA [None]
  - INCORRECT DOSE ADMINISTERED [None]
  - IRRITABLE BOWEL SYNDROME [None]
  - TREATMENT NONCOMPLIANCE [None]
